FAERS Safety Report 9536098 (Version 1)
Quarter: 2013Q2

REPORT INFORMATION
  Report Type: Spontaneous
  Country: US (occurrence: None)
  Receive Date: 20130507
  Receipt Date: 20130507
  Transmission Date: 20140414
  Serious: No
  Sender: FDA-Public Use
  Company Number: PHEH2013US000480

PATIENT
  Age: 64 Year
  Sex: Female

DRUGS (5)
  1. AFINITOR [Suspect]
  2. LEVOTHYROXINE [Concomitant]
  3. CYMBALTA [Concomitant]
  4. PROVENTIL [Concomitant]
  5. ATROVENT [Concomitant]

REACTIONS (7)
  - Fatigue [None]
  - Nausea [None]
  - Dry mouth [None]
  - Oedema peripheral [None]
  - Myalgia [None]
  - Feeling abnormal [None]
  - Asthenia [None]
